FAERS Safety Report 9314091 (Version 1)
Quarter: 2013Q2

REPORT INFORMATION
  Report Type: Spontaneous
  Country: AT (occurrence: AT)
  Receive Date: 20130529
  Receipt Date: 20130529
  Transmission Date: 20140414
  Serious: Yes (Other)
  Sender: FDA-Public Use
  Company Number: AT-JNJFOC-20130513571

PATIENT
  Age: 79 Year
  Sex: Male
  Weight: 64 kg

DRUGS (2)
  1. XARELTO [Suspect]
     Indication: ATRIAL FIBRILLATION
     Route: 048
  2. XARELTO [Suspect]
     Indication: CEREBROVASCULAR ACCIDENT PROPHYLAXIS
     Route: 048

REACTIONS (8)
  - Gastrointestinal haemorrhage [Unknown]
  - Melaena [Unknown]
  - Haematochezia [Unknown]
  - Gastritis erosive [Unknown]
  - Subcutaneous haematoma [Unknown]
  - Abdominal pain upper [Unknown]
  - Fall [Unknown]
  - Duodenitis [Unknown]
